FAERS Safety Report 8758223 (Version 1)
Quarter: 2012Q4

REPORT INFORMATION
  Report Type: Report from Study
  Country: US (occurrence: US)
  Receive Date: 20120829
  Receipt Date: 20120829
  Transmission Date: 20130627
  Serious: Yes (Disabling)
  Sender: FDA-Public Use
  Company Number: US-BAYER-2012-088017

PATIENT

DRUGS (7)
  1. ASPIRIN (BHC TRADE NAME NOT CONFIRMED) [Suspect]
     Indication: CARDIOVASCULAR EVENT PROPHYLAXIS
     Route: 048
  2. ASPIRIN (BHC TRADE NAME NOT CONFIRMED) [Interacting]
     Indication: CAROTID ARTERY STENOSIS
     Dosage: 325 mg, QD
     Route: 048
  3. ASPIRIN (BHC TRADE NAME NOT CONFIRMED) [Interacting]
     Indication: CAROTID ARTERY STENT INSERTION
  4. ASPIRIN (BHC TRADE NAME NOT CONFIRMED) [Interacting]
     Indication: ANTIPLATELET THERAPY
  5. CLOPIDOGREL [Interacting]
     Indication: CAROTID ARTERY STENOSIS
  6. CLOPIDOGREL [Interacting]
     Indication: CAROTID ARTERY STENT INSERTION
  7. CLOPIDOGREL [Interacting]
     Indication: ANTIPLATELET THERAPY

REACTIONS (1)
  - Cerebral haemorrhage [Recovering/Resolving]
